FAERS Safety Report 9277933 (Version 1)
Quarter: 2013Q2

REPORT INFORMATION
  Report Type: Report from Study
  Country: US (occurrence: US)
  Receive Date: 20130508
  Receipt Date: 20130508
  Transmission Date: 20140414
  Serious: Yes (Hospitalization)
  Sender: FDA-Public Use
  Company Number: PHEH2013US010064

PATIENT
  Sex: Male

DRUGS (10)
  1. GLEEVEC [Suspect]
     Indication: CHRONIC MYELOID LEUKAEMIA
     Dosage: 400 MG, DAILY
     Route: 048
     Dates: start: 201302
  2. FUROSEMIDE [Concomitant]
  3. VIAGRA [Concomitant]
  4. LANSOPRAZOLE [Concomitant]
  5. SPIRONOLACTONE [Concomitant]
  6. ALLOPURINOL [Concomitant]
  7. FELODIPINE ER [Concomitant]
  8. PEPCID AC [Concomitant]
  9. PLAVIX [Concomitant]
  10. VESICARE [Concomitant]

REACTIONS (1)
  - Hip fracture [Unknown]
